FAERS Safety Report 26022699 (Version 2)
Quarter: 2025Q4

REPORT INFORMATION
  Report Type: Report from Study
  Country: JP (occurrence: JP)
  Receive Date: 20251110
  Receipt Date: 20251219
  Transmission Date: 20260117
  Serious: No
  Sender: EISAI
  Company Number: JP-Eisai-202509956_LEQ_P_1

PATIENT
  Age: 79 Year
  Sex: Male

DRUGS (8)
  1. LEQEMBI [Suspect]
     Active Substance: LECANEMAB-IRMB
     Indication: Dementia
     Route: 041
     Dates: start: 20250128, end: 2025
  2. LEQEMBI [Suspect]
     Active Substance: LECANEMAB-IRMB
     Route: 041
     Dates: start: 20251211
  3. DAYVIGO [Concomitant]
     Active Substance: LEMBOREXANT
     Dates: start: 202508, end: 202509
  4. FLUVASTATIN SODIU [Concomitant]
  5. RABEPRAZOLE SODIUM [Concomitant]
     Active Substance: RABEPRAZOLE SODIUM
  6. KETOPROFEN [Concomitant]
     Active Substance: KETOPROFEN
  7. MIRTAZAPINE [Concomitant]
     Active Substance: MIRTAZAPINE
  8. MIRTAZAPINE [Concomitant]
     Active Substance: MIRTAZAPINE

REACTIONS (1)
  - Atrial fibrillation [Not Recovered/Not Resolved]

NARRATIVE: CASE EVENT DATE: 20251021
